FAERS Safety Report 7338154-X (Version None)
Quarter: 2011Q1

REPORT INFORMATION
  Report Type: 
  Country: None (occurrence: None)
  Receive Date: 20110308
  Receipt Date: 20110223
  Transmission Date: 20110831
  Serious: Yes (Hospitalization)
  Sender: FDA-Public Use
  Company Number: FR-ELI_LILLY_AND_COMPANY-FR201103000861

PATIENT
  Sex: Female

DRUGS (4)
  1. ALPRAZOLAM [Concomitant]
     Dosage: 0.25 MG, 2/D
     Route: 048
     Dates: start: 20071101
  2. STILNOX [Concomitant]
     Dosage: 10 MG, EACH EVENING
     Route: 048
     Dates: start: 20071101
  3. ABILIFY [Concomitant]
     Dosage: 15 MG, DAILY (1/D)
     Route: 048
     Dates: start: 20071101, end: 20080117
  4. CYMBALTA [Suspect]
     Dosage: 60 MG, DAILY (1/D)
     Route: 048
     Dates: start: 20080108, end: 20080117

REACTIONS (5)
  - POTENTIATING DRUG INTERACTION [None]
  - ANXIETY [None]
  - PSYCHOMOTOR SKILLS IMPAIRED [None]
  - EXTRAPYRAMIDAL DISORDER [None]
  - DYSKINESIA [None]
